FAERS Safety Report 4585623-1 (Version None)
Quarter: 2005Q1

REPORT INFORMATION
  Report Type: 
  Country: None (occurrence: None)
  Receive Date: 20050217
  Receipt Date: 20050210
  Transmission Date: 20050727
  Serious: Yes (Hospitalization)
  Sender: FDA-Public Use
  Company Number: US-JNJFOC-20050203018

PATIENT
  Sex: Male

DRUGS (9)
  1. DURAGESIC [Suspect]
     Route: 062
  2. LIPITOR [Concomitant]
     Route: 049
  3. PLAVIX [Concomitant]
     Route: 049
  4. PAXIL [Concomitant]
     Route: 049
  5. XANAX [Concomitant]
     Route: 049
  6. ATENOLOL [Concomitant]
     Route: 049
  7. OXYCODONE [Concomitant]
     Dosage: 10/325 MG QID
     Route: 049
  8. ASPIRIN [Concomitant]
     Route: 049
  9. ZETIA [Concomitant]
     Route: 049

REACTIONS (4)
  - CONFUSIONAL STATE [None]
  - DRUG WITHDRAWAL SYNDROME [None]
  - HYPERHIDROSIS [None]
  - MYOCARDIAL INFARCTION [None]
